FAERS Safety Report 9999193 (Version 1)
Quarter: 2014Q1

REPORT INFORMATION
  Report Type: Spontaneous
  Country: IT (occurrence: None)
  Receive Date: 20140310
  Receipt Date: 20140310
  Transmission Date: 20141002
  Serious: Yes (Life-Threatening)
  Sender: FDA-Public Use
  Company Number: 2213337

PATIENT
  Age: 67 Year
  Sex: Female
  Weight: 70 kg

DRUGS (3)
  1. OXALIPLATIN [Suspect]
     Indication: COLON CANCER
     Dosage: 130 MG/M 2 MILLIGRAM(S)/SQ. METER ( CYCLICAL ) INTRAVENOUS (NOT OTHERWISE SPECIFIED)
     Route: 042
     Dates: start: 20140218, end: 20140218
  2. DEXAMETHASONE [Concomitant]
  3. ZOFRAN /00955301/ [Concomitant]

REACTIONS (5)
  - Choking sensation [None]
  - Syncope [None]
  - Spinal pain [None]
  - Anaphylactoid reaction [None]
  - Nausea [None]
